FAERS Safety Report 23382822 (Version 1)
Quarter: 2024Q1

REPORT INFORMATION
  Report Type: Spontaneous
  Country: US (occurrence: US)
  Receive Date: 20240109
  Receipt Date: 20240109
  Transmission Date: 20240410
  Serious: Yes (Other)
  Sender: FDA-Public Use
  Company Number: US-OCULAR THERAPEUTIX-2023OCX00004

PATIENT
  Sex: Female

DRUGS (1)
  1. DEXTENZA [Suspect]
     Active Substance: DEXAMETHASONE

REACTIONS (1)
  - Cystoid macular oedema [Unknown]
